FAERS Safety Report 4834098-3 (Version None)
Quarter: 2005Q4

REPORT INFORMATION
  Report Type: 
  Country: None (occurrence: None)
  Receive Date: 20051122
  Receipt Date: 20051110
  Transmission Date: 20060501
  Serious: Yes (Hospitalization)
  Sender: FDA-Public Use
  Company Number: FR-SOLVAY-00205003876

PATIENT
  Age: 53 Year
  Sex: Female
  Weight: 110 kg

DRUGS (15)
  1. HYDROCORTISONE [Concomitant]
     Indication: ILL-DEFINED DISORDER
     Dosage: DAILY DOSE:  UNKNOWN
     Route: 065
  2. COVERSYL [Suspect]
     Indication: ESSENTIAL HYPERTENSION
     Dosage: DAILY DOSE: 2 MILLIGRAM(S)
     Route: 048
  3. ZYRTEC [Concomitant]
     Indication: ILL-DEFINED DISORDER
     Dosage: DAILY DOSE:  UNKNOWN
     Route: 048
  4. CLAMOXYL [Suspect]
     Indication: ARTHRITIS BACTERIAL
     Dosage: DAILY DOSE:  UNKNOWN
     Route: 042
     Dates: start: 20040927, end: 20041018
  5. CLAMOXYL [Suspect]
     Dosage: DAILY DOSE: 8 GRAM(S)
     Route: 048
     Dates: start: 20041019, end: 20041001
  6. LEVOTHYROX [Concomitant]
     Indication: ILL-DEFINED DISORDER
     Dosage: DAILY DOSE:  UNKNOWN
     Route: 065
  7. TARGOCID [Suspect]
     Indication: ARTHRITIS BACTERIAL
     Dosage: DAILY DOSE:  UNKNOWN
     Route: 042
     Dates: start: 20040927, end: 20041018
  8. TARGOCID [Suspect]
     Dosage: DAILY DOSE:  UNKNOWN
     Route: 042
     Dates: start: 20041025
  9. TARDYFERON [Concomitant]
     Indication: ILL-DEFINED DISORDER
     Dosage: DAILY DOSE:  UNKNOWN
     Route: 065
  10. DAFALGAN [Suspect]
     Indication: ILL-DEFINED DISORDER
     Dosage: DAILY DOSE: 2 DOSAGE FORM
     Route: 048
  11. LEXOMIL [Concomitant]
     Indication: ILL-DEFINED DISORDER
     Dosage: DAILY DOSE:  UNKNOWN
     Route: 065
  12. SERETIDE [Suspect]
     Indication: ASTHMA
     Dosage: DAILY DOSE:  UNKNOWN
     Route: 055
  13. IXEL [Concomitant]
     Indication: ILL-DEFINED DISORDER
     Dosage: DAILY DOSE:  UNKNOWN
     Route: 065
  14. SINTROM [Suspect]
     Indication: PHLEBITIS
     Dosage: DAILY DOSE:  UNKNOWN
     Route: 048
  15. VITAMIN B-12 [Concomitant]
     Indication: ILL-DEFINED DISORDER
     Dosage: DAILY DOSE:  UNKNOWN
     Route: 065

REACTIONS (2)
  - ARTHRITIS BACTERIAL [None]
  - NEUTROPENIA [None]
